FAERS Safety Report 24822984 (Version 1)
Quarter: 2025Q1

REPORT INFORMATION
  Report Type: Spontaneous
  Country: NL (occurrence: NL)
  Receive Date: 20250109
  Receipt Date: 20250109
  Transmission Date: 20250408
  Serious: Yes (Disabling, Other)
  Sender: CELLTRION
  Company Number: NL-CELLTRION INC.-2025NL000031

PATIENT

DRUGS (1)
  1. YUFLYMA [Suspect]
     Active Substance: ADALIMUMAB-AATY
     Indication: Product used for unknown indication

REACTIONS (5)
  - Deafness unilateral [Unknown]
  - Ear deformity acquired [Unknown]
  - Eyelid abrasion [Unknown]
  - Dermatitis [Unknown]
  - Tinnitus [Unknown]
